FAERS Safety Report 25079500 (Version 1)
Quarter: 2025Q1

REPORT INFORMATION
  Report Type: Spontaneous
  Country: CN (occurrence: CN)
  Receive Date: 20250314
  Receipt Date: 20250314
  Transmission Date: 20250409
  Serious: Yes (Other)
  Sender: PFIZER
  Company Number: CN-PFIZER INC-PV202500029734

PATIENT
  Age: 67 Year
  Sex: Female

DRUGS (3)
  1. AZITHROMYCIN [Suspect]
     Active Substance: AZITHROMYCIN
     Indication: Atypical mycobacterial infection
     Dosage: 0.5 G, 1X/DAY EVERY 24 HOURS
     Route: 048
     Dates: start: 20241010, end: 20241121
  2. RIFABUTIN [Suspect]
     Active Substance: RIFABUTIN
     Indication: Atypical mycobacterial infection
     Dosage: 0.15 G, 1X/DAY EVERY 24 HOURS
     Route: 048
     Dates: start: 20241010, end: 20241121
  3. ETHAMBUTOL HYDROCHLORIDE [Suspect]
     Active Substance: ETHAMBUTOL HYDROCHLORIDE
     Indication: Atypical mycobacterial infection
     Dosage: 0.75 G, 1X/DAY EVERY 24 HOURS
     Route: 048
     Dates: start: 20241010, end: 20241121

REACTIONS (2)
  - Myelosuppression [Recovering/Resolving]
  - Off label use [Unknown]

NARRATIVE: CASE EVENT DATE: 20241010
